FAERS Safety Report 25854364 (Version 2)
Quarter: 2025Q4

REPORT INFORMATION
  Report Type: Report from Study
  Country: GB (occurrence: GB)
  Receive Date: 20250927
  Receipt Date: 20251221
  Transmission Date: 20260118
  Serious: Yes (Hospitalization, Other)
  Sender: ABBVIE
  Company Number: GB-ABBVIE-6476939

PATIENT
  Age: 82 Year
  Sex: Male

DRUGS (6)
  1. RINVOQ [Suspect]
     Active Substance: UPADACITINIB
     Indication: Rheumatoid arthritis
     Dosage: 28 X RINVOQ 15MG MODIFIED-RELEASE TABLETS. DOSE FORM: MODIFIED-RELEASE TABLET
     Route: 048
     Dates: start: 202207, end: 20250613
  2. AMLODIPINE [Concomitant]
     Active Substance: AMLODIPINE BESYLATE
     Indication: Product used for unknown indication
  3. CHOLECALCIFEROL [Concomitant]
     Active Substance: CHOLECALCIFEROL
     Indication: Product used for unknown indication
     Dosage: 400 UNIT
  4. GOSERELIN [Concomitant]
     Active Substance: GOSERELIN
     Indication: Product used for unknown indication
     Dosage: IMPLANT FOR 12 WEEKS
  5. HYDROXOCOBALAMIN [Concomitant]
     Active Substance: HYDROXOCOBALAMIN
     Indication: Product used for unknown indication
     Dosage: DOSAGE: 1 MG/ML SOLUTION FOR INJECTION FOR 12 WEEK
  6. HYDROXYCHLOROQUINE [Concomitant]
     Active Substance: HYDROXYCHLOROQUINE
     Indication: Product used for unknown indication

REACTIONS (5)
  - Accident [Not Recovered/Not Resolved]
  - Pulmonary thrombosis [Unknown]
  - Cholelithiasis [Unknown]
  - Liver function test increased [Unknown]
  - Neoplasm [Unknown]

NARRATIVE: CASE EVENT DATE: 20250101
